FAERS Safety Report 8376744-6 (Version None)
Quarter: 2012Q2

REPORT INFORMATION
  Report Type: 
  Country: None (occurrence: None)
  Receive Date: 20120522
  Receipt Date: 20120419
  Transmission Date: 20120825
  Serious: No
  Sender: FDA-Public Use
  Company Number: US-BRISTOL-MYERS SQUIBB COMPANY-16537425

PATIENT
  Age: 56 Year
  Sex: Male

DRUGS (1)
  1. ONGLYZA [Suspect]

REACTIONS (2)
  - NAUSEA [None]
  - VOMITING [None]
